FAERS Safety Report 17012785 (Version 1)
Quarter: 2019Q4

REPORT INFORMATION
  Report Type: Spontaneous
  Country: US (occurrence: US)
  Receive Date: 20191001
  Receipt Date: 20191001
  Transmission Date: 20200122
  Serious: Yes (Other)
  Sender: FDA-Public Use
  Company Number: None

PATIENT
  Age: 35 Year
  Sex: Female

DRUGS (2)
  1. HUMIRA [Suspect]
     Active Substance: ADALIMUMAB
     Indication: PSORIASIS
     Route: 058
     Dates: start: 20180318
  2. OE COMPLETE CAP ONE [Concomitant]

REACTIONS (4)
  - Drug exposure before pregnancy [None]
  - Condition aggravated [None]
  - Abortion spontaneous [None]
  - Therapy cessation [None]

NARRATIVE: CASE EVENT DATE: 2019
